FAERS Safety Report 5160634-6 (Version None)
Quarter: 2006Q4

REPORT INFORMATION
  Report Type: 
  Country: None (occurrence: None)
  Receive Date: 20061121
  Receipt Date: 20060914
  Transmission Date: 20070319
  Serious: Yes (Hospitalization, Disabling)
  Sender: FDA-Public Use
  Company Number: 229923

PATIENT
  Age: 51 Year
  Sex: Female

DRUGS (4)
  1. BEVACIZUMAB OR PLACEBO (BEVACIZUMAB) PWDR + SOLVENT, INFUSION SOLN, 10 [Suspect]
     Indication: BREAST CANCER METASTATIC
     Dosage: 1384.5 MG, Q3W, INTRAVENOUS
     Route: 042
     Dates: start: 20060331
  2. BEVACIZUMAB OR PLACEBO (BEVACIZUMAB) PWDR + SOLVENT, INFUSION SOLN, 10 [Suspect]
  3. TAXOTERE [Suspect]
     Indication: BREAST CANCER METASTATIC
     Dosage: 146 MG, UNK, UNK
     Dates: start: 20060331
  4. VICODIN [Concomitant]

REACTIONS (23)
  - ABDOMINAL PAIN LOWER [None]
  - ALANINE AMINOTRANSFERASE INCREASED [None]
  - ASPARTATE AMINOTRANSFERASE INCREASED [None]
  - BACTERIAL INFECTION [None]
  - BLOOD ALBUMIN DECREASED [None]
  - BLOOD ALKALINE PHOSPHATASE INCREASED [None]
  - BLOOD GLUCOSE INCREASED [None]
  - BLOOD UREA INCREASED [None]
  - CULTURE TISSUE SPECIMEN POSITIVE [None]
  - DIARRHOEA [None]
  - ESCHERICHIA INFECTION [None]
  - HAEMATOCRIT DECREASED [None]
  - HAEMOGLOBIN DECREASED [None]
  - HEART RATE INCREASED [None]
  - PERIRECTAL ABSCESS [None]
  - PROCTALGIA [None]
  - PROTEIN TOTAL DECREASED [None]
  - PROTEUS INFECTION [None]
  - SKIN NECROSIS [None]
  - SKIN ULCER [None]
  - STAPHYLOCOCCAL INFECTION [None]
  - SUBCUTANEOUS ABSCESS [None]
  - WOUND SECRETION [None]
